FAERS Safety Report 5024120-6 (Version None)
Quarter: 2006Q2

REPORT INFORMATION
  Report Type: 
  Country: None (occurrence: None)
  Receive Date: 20060607
  Receipt Date: 20060525
  Transmission Date: 20061013
  Serious: Yes (Other)
  Sender: FDA-Public Use
  Company Number: 225539

PATIENT
  Sex: 0

DRUGS (1)
  1. RITUXAN [Suspect]
     Dosage: 375 MG/M2, 1/WEEK

REACTIONS (3)
  - BLINDNESS [None]
  - INFUSION RELATED REACTION [None]
  - REFRACTION DISORDER [None]
